FAERS Safety Report 8614054-X (Version None)
Quarter: 2012Q2

REPORT INFORMATION
  Report Type: 
  Country: None (occurrence: None)
  Receive Date: 20120423
  Receipt Date: 20090422
  Transmission Date: 20120825
  Serious: Yes (Other)
  Sender: FDA-Public Use
  Company Number: PHEH2009US04086

PATIENT
  Age: 68 Year
  Sex: Male

DRUGS (1)
  1. EXJADE [Suspect]
     Dosage: ORAL
     Route: 048
     Dates: start: 20090401

REACTIONS (2)
  - EYE SWELLING [None]
  - FACE OEDEMA [None]
